FAERS Safety Report 10605866 (Version 1)
Quarter: 2014Q4

REPORT INFORMATION
  Report Type: Spontaneous
  Country: US (occurrence: None)
  Receive Date: 20141121
  Receipt Date: 20141121
  Transmission Date: 20150529
  Serious: Yes (Death)
  Sender: FDA-Public Use
  Company Number: 201411082

PATIENT
  Age: 57 Year
  Sex: Male

DRUGS (1)
  1. TESTIM [Suspect]
     Active Substance: TESTOSTERONE
     Indication: BLOOD TESTOSTERONE DECREASED
     Route: 062
     Dates: start: 200507, end: 20090308

REACTIONS (5)
  - Pain [None]
  - Acute myocardial infarction [None]
  - Injury [None]
  - Product quality issue [None]
  - Mental disorder [None]

NARRATIVE: CASE EVENT DATE: 20090308
